FAERS Safety Report 4588921-0 (Version None)
Quarter: 2005Q1

REPORT INFORMATION
  Report Type: 
  Country: None (occurrence: None)
  Receive Date: 20050216
  Receipt Date: 20050202
  Transmission Date: 20050727
  Serious: Yes (Hospitalization, Other)
  Sender: FDA-Public Use
  Company Number: USA050189482

PATIENT
  Age: 69 Year
  Sex: Male

DRUGS (4)
  1. ZYPREXA [Suspect]
     Dosage: 40 MG DAY
     Dates: start: 20041001, end: 20041230
  2. RESTORIL [Concomitant]
  3. BEXTRA [Concomitant]
  4. PARNATE [Concomitant]

REACTIONS (10)
  - AGITATION [None]
  - DEPRESSION [None]
  - DRUG INEFFECTIVE [None]
  - LOSS OF CONSCIOUSNESS [None]
  - OVERDOSE [None]
  - PNEUMONIA [None]
  - PRESCRIBED OVERDOSE [None]
  - RESTLESSNESS [None]
  - SUICIDE ATTEMPT [None]
  - WEIGHT DECREASED [None]
